FAERS Safety Report 19074800 (Version 2)
Quarter: 2021Q2

REPORT INFORMATION
  Report Type: Other
  Country: US (occurrence: US)
  Receive Date: 20210330
  Receipt Date: 20210503
  Transmission Date: 20210717
  Serious: No
  Sender: FDA-Public Use
  Company Number: US-NEUROCRINE BIOSCIENCES INC.-2021NBI01105

PATIENT

DRUGS (1)
  1. INGREZZA [Suspect]
     Active Substance: VALBENAZINE
     Indication: TARDIVE DYSKINESIA
     Dosage: 40 MILLIGRAM, BID
     Route: 048
     Dates: start: 20201105

REACTIONS (5)
  - Suicidal ideation [Unknown]
  - Depression [Unknown]
  - Drug ineffective [Unknown]
  - Off label use [Unknown]
  - Decreased activity [Unknown]
